FAERS Safety Report 11929528 (Version 1)
Quarter: 2016Q1

REPORT INFORMATION
  Report Type: Spontaneous
  Country: US (occurrence: None)
  Receive Date: 20160119
  Receipt Date: 20160119
  Transmission Date: 20160526
  Serious: Yes (Other)
  Sender: FDA-Public Use
  Company Number: None

PATIENT
  Age: 51 Year
  Sex: Female
  Weight: 95.26 kg

DRUGS (4)
  1. LEVOTHYROXINE. [Concomitant]
     Active Substance: LEVOTHYROXINE
  2. BIOTE PELLETS 150MG BIOTE [Suspect]
     Active Substance: ESTROGENS\TESTOSTERONE
     Indication: HORMONE REPLACEMENT THERAPY
     Dosage: 1 PELLET GIVEN INTO/UNDER THE SKIN, ONCE
  3. MICRO ICED PROGESTERONE [Concomitant]
  4. ELAVIL [Concomitant]
     Active Substance: AMITRIPTYLINE HYDROCHLORIDE

REACTIONS (5)
  - Acne [None]
  - Nervousness [None]
  - Alopecia [None]
  - Panic reaction [None]
  - Blood testosterone increased [None]
